FAERS Safety Report 9598473 (Version 1)
Quarter: 2013Q4

REPORT INFORMATION
  Report Type: Spontaneous
  Country: US (occurrence: US)
  Receive Date: 20131004
  Receipt Date: 20131004
  Transmission Date: 20140711
  Serious: No
  Sender: FDA-Public Use
  Company Number: US-AMGEN-USASP2013023838

PATIENT
  Age: 35 Year
  Sex: Male
  Weight: 102.4 kg

DRUGS (6)
  1. ENBREL [Suspect]
     Indication: PRODUCT USED FOR UNKNOWN INDICATION
     Dosage: 50 MG, 2 TIMES/WK
     Route: 058
  2. ENBREL [Suspect]
  3. ZYRTEC [Concomitant]
     Dosage: 10 MG, UNK
  4. HUMIRA [Concomitant]
     Dosage: UNK
  5. HYDROCHLOROTHIAZIDE [Concomitant]
     Dosage: 12.5 MG, UNK
  6. ADVIL PM                           /05810501/ [Concomitant]
     Dosage: 200-25 MG

REACTIONS (2)
  - Drug effect decreased [Unknown]
  - Drug intolerance [Unknown]
